FAERS Safety Report 13986459 (Version 1)
Quarter: 2017Q3

REPORT INFORMATION
  Report Type: Spontaneous
  Country: US (occurrence: US)
  Receive Date: 20170919
  Receipt Date: 20170919
  Transmission Date: 20171128
  Serious: No
  Sender: FDA-Public Use
  Company Number: US-ASTRAZENECA-2017SE95086

PATIENT
  Sex: Female

DRUGS (1)
  1. GLYCOPYRRONIUM [Suspect]
     Active Substance: GLYCOPYRRONIUM
     Route: 055

REACTIONS (1)
  - Formication [Unknown]
